FAERS Safety Report 15283265 (Version 1)
Quarter: 2018Q3

REPORT INFORMATION
  Report Type: Spontaneous
  Country: US (occurrence: US)
  Receive Date: 20180816
  Receipt Date: 20180816
  Transmission Date: 20181010
  Serious: No
  Sender: FDA-Public Use
  Company Number: US-SHIRE-US201830496

PATIENT
  Age: 62 Year
  Sex: Male

DRUGS (1)
  1. GATTEX [Suspect]
     Active Substance: TEDUGLUTIDE\WATER
     Indication: PRODUCT USED FOR UNKNOWN INDICATION
     Route: 065

REACTIONS (4)
  - Abdominal distension [Unknown]
  - Abdominal pain upper [Unknown]
  - Vomiting [Unknown]
  - Nausea [Unknown]

NARRATIVE: CASE EVENT DATE: 20180731
